FAERS Safety Report 13397436 (Version 3)
Quarter: 2017Q2

REPORT INFORMATION
  Report Type: Spontaneous
  Country: US (occurrence: US)
  Receive Date: 20170403
  Receipt Date: 20170602
  Transmission Date: 20170830
  Serious: Yes (Other)
  Sender: FDA-Public Use
  Company Number: US-009507513-1703USA014475

PATIENT
  Age: 26 Year
  Sex: Female
  Weight: 85.71 kg

DRUGS (1)
  1. NEXPLANON [Suspect]
     Active Substance: ETONOGESTREL
     Indication: MENSTRUATION IRREGULAR
     Dosage: 1 ROD EVERY 3 YEARS, FREQUENCY REPORTED AS ^DAILY IMPLANT^
     Route: 059
     Dates: start: 20160822

REACTIONS (4)
  - Weight decreased [Unknown]
  - Complication associated with device [Recovered/Resolved]
  - Product use in unapproved indication [Unknown]
  - Gastrectomy [Unknown]

NARRATIVE: CASE EVENT DATE: 20160822
